FAERS Safety Report 9206200 (Version 1)
Quarter: 2013Q2

REPORT INFORMATION
  Report Type: Spontaneous
  Country: BR (occurrence: BR)
  Receive Date: 20130403
  Receipt Date: 20130403
  Transmission Date: 20140414
  Serious: Yes (Other)
  Sender: FDA-Public Use
  Company Number: PHHY2013BR031699

PATIENT
  Age: 63 Year
  Sex: Female

DRUGS (1)
  1. TEGRETOL CR [Suspect]
     Indication: TRIGEMINAL NEURALGIA
     Dosage: 4 TABLETS, DAILY
     Route: 048

REACTIONS (2)
  - Panic attack [Recovered/Resolved]
  - Feeling of despair [Recovered/Resolved]
